FAERS Safety Report 8155734-2 (Version None)
Quarter: 2012Q1

REPORT INFORMATION
  Report Type: 
  Country: None (occurrence: None)
  Receive Date: 20120215
  Receipt Date: 20120131
  Transmission Date: 20120608
  Serious: Yes (Death, Hospitalization)
  Sender: FDA-Public Use
  Company Number: UTC-015105

PATIENT
  Age: 67 Year
  Sex: Female
  Weight: 91 kg

DRUGS (3)
  1. REVATIO [Concomitant]
  2. TRAMADEX (TRAMADOL HYDROCHLORIDE) [Concomitant]
  3. REMODULIN [Suspect]
     Indication: PULMONARY ARTERIAL HYPERTENSION
     Dosage: 300ML/HR (0.034 UG/KG, 1 IN 1 MIN), INTRAVENOUS
     Route: 042
     Dates: start: 20100101

REACTIONS (13)
  - ENDOCARDITIS [None]
  - HAEMODIALYSIS [None]
  - RESPIRATORY FAILURE [None]
  - DYSPNOEA [None]
  - RENAL IMPAIRMENT [None]
  - DEVICE RELATED INFECTION [None]
  - LEUKOCYTOSIS [None]
  - MULTI-ORGAN FAILURE [None]
  - BACTERIAL TEST POSITIVE [None]
  - PYREXIA [None]
  - BLOOD PRESSURE DECREASED [None]
  - MALAISE [None]
  - PERICARDITIS [None]
